FAERS Safety Report 6265878-8 (Version None)
Quarter: 2009Q3

REPORT INFORMATION
  Report Type: 
  Country: None (occurrence: None)
  Receive Date: 20090708
  Receipt Date: 20090708
  Transmission Date: 20100115
  Serious: Yes (Hospitalization)
  Sender: FDA-Public Use
  Company Number: None

PATIENT
  Sex: Male
  Weight: 77.3 kg

DRUGS (7)
  1. MEMANTINE HCL [Suspect]
     Dosage: 720 MG
  2. ATENOLOL [Concomitant]
  3. CARBOPLATIN [Concomitant]
  4. DEXAMETHASONE [Concomitant]
  5. LEXAPRO [Concomitant]
  6. LISINOPRIL [Concomitant]
  7. TAXOTERE [Concomitant]

REACTIONS (2)
  - HEADACHE [None]
  - RENAL FAILURE [None]
